FAERS Safety Report 8371049-1 (Version None)
Quarter: 2012Q2

REPORT INFORMATION
  Report Type: 
  Country: None (occurrence: None)
  Receive Date: 20120518
  Receipt Date: 20120508
  Transmission Date: 20120825
  Serious: Yes (Other)
  Sender: FDA-Public Use
  Company Number: IL-BRISTOL-MYERS SQUIBB COMPANY-16600637

PATIENT
  Age: 30 Year
  Sex: Male

DRUGS (7)
  1. PROCARBAZINE HYDROCHLORIDE [Suspect]
     Indication: HODGKIN'S DISEASE
  2. BLEOMYCIN SULFATE [Suspect]
     Indication: HODGKIN'S DISEASE
     Dosage: ACCUMULATIVE DOSE 120MG/M2
  3. ETOPOSIDE [Suspect]
     Indication: HODGKIN'S DISEASE
  4. CYTOXAN [Suspect]
     Indication: HODGKIN'S DISEASE
  5. PREDNISONE [Suspect]
     Indication: HODGKIN'S DISEASE
  6. ONCOVIN [Suspect]
     Indication: HODGKIN'S DISEASE
  7. ADRIAMYCIN PFS [Suspect]
     Indication: HODGKIN'S DISEASE

REACTIONS (2)
  - PULMONARY TOXICITY [None]
  - RESPIRATORY DISORDER [None]
